FAERS Safety Report 7216866-6 (Version None)
Quarter: 2010Q4

REPORT INFORMATION
  Report Type: 
  Country: None (occurrence: None)
  Receive Date: 20101230
  Receipt Date: 20101216
  Transmission Date: 20110411
  Serious: Yes (Hospitalization, Disabling, Other)
  Sender: FDA-Public Use
  Company Number: 2010MA005431

PATIENT
  Age: 64 Year
  Sex: Female

DRUGS (10)
  1. DICLOFENAC SODIUM [Suspect]
     Dosage: 50 MG; TID; PO
     Route: 048
  2. RIVAROXABAN [Suspect]
     Indication: HIP ARTHROPLASTY
     Dosage: 10 MG; QD; PO
     Route: 048
     Dates: start: 20091218, end: 20091231
  3. DICLOFENAC [Concomitant]
  4. AMITRIPTYLINE [Concomitant]
  5. LISINOPRIL [Concomitant]
  6. FERROUS SULFATE [Concomitant]
  7. FLOXACILLIN SODIUM [Concomitant]
  8. RANITIDINE [Concomitant]
  9. TRAMADOL [Concomitant]
  10. PARACETAMOL [Concomitant]

REACTIONS (6)
  - ACTIVATED PARTIAL THROMBOPLASTIN TIME PROLONGED [None]
  - BLOOD FIBRINOGEN INCREASED [None]
  - COAGULATION FACTOR X LEVEL INCREASED [None]
  - PROTHROMBIN TIME PROLONGED [None]
  - WOUND HAEMORRHAGE [None]
  - WOUND SECRETION [None]
